FAERS Safety Report 14061930 (Version 2)
Quarter: 2017Q4

REPORT INFORMATION
  Report Type: Spontaneous
  Country: IT (occurrence: IT)
  Receive Date: 20171009
  Receipt Date: 20171026
  Transmission Date: 20180321
  Serious: Yes (Hospitalization)
  Sender: FDA-Public Use
  Company Number: IT-SUN PHARMACEUTICAL INDUSTRIES LTD-2017RR-151494

PATIENT
  Age: 49 Year
  Sex: Male

DRUGS (2)
  1. LORAZEPAM. [Suspect]
     Active Substance: LORAZEPAM
     Indication: ANXIETY
     Dosage: 20 MG DAILY
     Route: 048
  2. PREGABALIN. [Suspect]
     Active Substance: PREGABALIN
     Indication: ANXIETY
     Dosage: 1950 MG DAILY
     Route: 048

REACTIONS (2)
  - Drug abuse [Unknown]
  - Drug dependence [Unknown]

NARRATIVE: CASE EVENT DATE: 20170920
